FAERS Safety Report 5034741-2 (Version None)
Quarter: 2006Q2

REPORT INFORMATION
  Report Type: 
  Country: None (occurrence: None)
  Receive Date: 20060621
  Receipt Date: 20060614
  Transmission Date: 20061013
  Serious: Yes (Death)
  Sender: FDA-Public Use
  Company Number: HQWYE410619MAY06

PATIENT
  Age: 71 Year
  Sex: Female

DRUGS (11)
  1. GEMTUZUMAB OZOGAMICIN (GEMTUZUMAB OZOGAMICIN, INJECTION) [Suspect]
     Indication: ACUTE MYELOID LEUKAEMIA
     Dosage: SEE IMAGE
     Route: 042
     Dates: start: 20051126, end: 20051126
  2. GEMTUZUMAB OZOGAMICIN (GEMTUZUMAB OZOGAMICIN, INJECTION) [Suspect]
     Indication: ACUTE MYELOID LEUKAEMIA
     Dosage: SEE IMAGE
     Route: 042
     Dates: start: 20060118, end: 20060118
  3. CYTARABINE [Suspect]
     Indication: ACUTE MYELOID LEUKAEMIA
     Dosage: SEE IMAGE
     Dates: start: 20051210, end: 20051216
  4. CYTARABINE [Suspect]
     Indication: ACUTE MYELOID LEUKAEMIA
     Dosage: SEE IMAGE
     Dates: start: 20060118, end: 20060123
  5. IDARUBICIN HCL [Suspect]
     Dosage: CONSOLIDATION:  CUMULATIVE DOSE 36 MG INTRAVENOUS
     Route: 042
     Dates: start: 20060118, end: 20060123
  6. NOVANTRONE [Suspect]
     Indication: ACUTE MYELOID LEUKAEMIA
     Dosage: INDUCTION:  DOSE 33MG INTRAVENOUS
     Route: 042
     Dates: start: 20051210, end: 20051216
  7. ETOPOSIDE [Suspect]
     Indication: ACUTE MYELOID LEUKAEMIA
     Dosage: SEE IMAGE
     Dates: start: 20051201, end: 20051216
  8. ETOPOSIDE [Suspect]
     Indication: ACUTE MYELOID LEUKAEMIA
     Dosage: SEE IMAGE
     Dates: start: 20060118, end: 20060123
  9. IMIPENEM (IMIPENEM) [Concomitant]
  10. VANCOMYCIN [Concomitant]
  11. AMPHOTERICIN B [Concomitant]

REACTIONS (3)
  - CARDIAC ARREST [None]
  - PSEUDOMONAL SEPSIS [None]
  - SEPTIC SHOCK [None]
